FAERS Safety Report 20131657 (Version 1)
Quarter: 2021Q4

REPORT INFORMATION
  Report Type: Spontaneous
  Country: US (occurrence: None)
  Receive Date: 20211130
  Receipt Date: 20211130
  Transmission Date: 20220303
  Serious: Yes (Hospitalization, Disabling)
  Sender: FDA-Public Use
  Company Number: None

PATIENT
  Age: 31 Year
  Sex: Female
  Weight: 77.11 kg

DRUGS (6)
  1. NEXPLANON [Suspect]
     Active Substance: ETONOGESTREL
  2. Lamrotigine [Concomitant]
  3. seroqil [Concomitant]
  4. IBUPROFEN [Concomitant]
     Active Substance: IBUPROFEN
  5. BAYER [Concomitant]
     Active Substance: ASPIRIN
  6. tylenoyl [Concomitant]

REACTIONS (4)
  - Vomiting [None]
  - Pallor [None]
  - Dysmenorrhoea [None]
  - Contraceptive implant [None]

NARRATIVE: CASE EVENT DATE: 20190601
